FAERS Safety Report 9281182 (Version 1)
Quarter: 2013Q2

REPORT INFORMATION
  Report Type: Spontaneous
  Country: US (occurrence: None)
  Receive Date: 20130508
  Receipt Date: 20130508
  Transmission Date: 20140414
  Serious: Yes (Hospitalization)
  Sender: FDA-Public Use
  Company Number: None

PATIENT
  Age: 80 Year
  Sex: Male

DRUGS (1)
  1. HEPARIN [Suspect]
     Dosage: 800 UNITS/HR, CONTINUOUS, IV
     Route: 042
     Dates: start: 20110314, end: 20110320

REACTIONS (4)
  - Cardiac valve prosthesis user [None]
  - Mouth haemorrhage [None]
  - Aspiration [None]
  - Injury associated with device [None]
